FAERS Safety Report 4761345-9 (Version None)
Quarter: 2005Q3

REPORT INFORMATION
  Report Type: 
  Country: None (occurrence: None)
  Receive Date: 20050901
  Receipt Date: 20050901
  Transmission Date: 20060218
  Serious: No
  Sender: FDA-Public Use
  Company Number: None

PATIENT
  Age: 37 Year
  Sex: Female
  Weight: 46.2669 kg

DRUGS (3)
  1. KADIAN [Suspect]
     Indication: PAIN
     Dosage: TWICE DAILY PO
     Route: 048
     Dates: start: 20050601
  2. OXYCONTIN [Suspect]
     Indication: CONDITION AGGRAVATED
     Dosage: TWICE DAILY PO
     Route: 048
     Dates: start: 20050701
  3. OXYCONTIN [Suspect]
     Indication: PAIN
     Dosage: TWICE DAILY PO
     Route: 048
     Dates: start: 20050701

REACTIONS (1)
  - GASTROINTESTINAL DISORDER [None]
